FAERS Safety Report 24465331 (Version 1)
Quarter: 2024Q4

REPORT INFORMATION
  Report Type: Report from Study
  Country: US (occurrence: US)
  Receive Date: 20241018
  Receipt Date: 20241018
  Transmission Date: 20250114
  Serious: No
  Sender: ROCHE
  Company Number: US-ROCHE-3524174

PATIENT
  Age: 30 Year
  Sex: Female
  Weight: 57.61 kg

DRUGS (2)
  1. XOLAIR [Suspect]
     Active Substance: OMALIZUMAB
     Indication: Idiopathic urticaria
     Dosage: NO
     Route: 065
     Dates: start: 2020, end: 2021
  2. XOLAIR [Suspect]
     Active Substance: OMALIZUMAB
     Route: 065
     Dates: start: 20240307

REACTIONS (2)
  - Urticaria [Not Recovered/Not Resolved]
  - Maternal exposure before pregnancy [Unknown]
